FAERS Safety Report 19147977 (Version 1)
Quarter: 2021Q2

REPORT INFORMATION
  Report Type: Report from Study
  Country: US (occurrence: US)
  Receive Date: 20210416
  Receipt Date: 20210416
  Transmission Date: 20210717
  Serious: Yes (Death)
  Sender: FDA-Public Use
  Company Number: US-ASTRAZENECA-2021A311534

PATIENT
  Age: 15422 Day
  Sex: Female

DRUGS (1)
  1. LYNPARZA [Suspect]
     Active Substance: OLAPARIB
     Indication: UTERINE CANCER
     Dosage: TAKE 2 TABLETS BY MOUTH ON DAYS 1, 3, 5, 7 AND TAKE 1 TABLET ON DAYS 2, 4, 6 IN THE MORNING, THEN...
     Route: 048
     Dates: start: 202011

REACTIONS (1)
  - Death [Fatal]

NARRATIVE: CASE EVENT DATE: 20210226
